FAERS Safety Report 17226865 (Version 1)
Quarter: 2020Q1

REPORT INFORMATION
  Report Type: Report from Study
  Country: None (occurrence: US)
  Receive Date: 20200102
  Receipt Date: 20200102
  Transmission Date: 20200409
  Serious: Yes (Hospitalization, Other)
  Sender: FDA-Public Use
  Company Number: US-ABBVIE-19K-163-3192041-00

PATIENT
  Age: 8 Year
  Sex: Male

DRUGS (2)
  1. HUMIRA [Suspect]
     Active Substance: ADALIMUMAB
     Indication: CROHN^S DISEASE
     Dosage: CITRATE FREE
     Route: 058
     Dates: start: 20190818, end: 2019
  2. HUMIRA [Suspect]
     Active Substance: ADALIMUMAB
     Route: 058
     Dates: start: 2019

REACTIONS (11)
  - Loss of personal independence in daily activities [Unknown]
  - Depressed mood [Unknown]
  - Pyrexia [Recovering/Resolving]
  - Fear [Unknown]
  - Insomnia [Unknown]
  - Arthritis bacterial [Unknown]
  - Malaise [Unknown]
  - Diarrhoea [Unknown]
  - Joint effusion [Unknown]
  - Streptococcal infection [Recovering/Resolving]
  - Device issue [Unknown]

NARRATIVE: CASE EVENT DATE: 2019
